FAERS Safety Report 7356213-2 (Version None)
Quarter: 2011Q1

REPORT INFORMATION
  Report Type: 
  Country: None (occurrence: None)
  Receive Date: 20110316
  Receipt Date: 20100823
  Transmission Date: 20110831
  Serious: Yes (Hospitalization, Other)
  Sender: FDA-Public Use
  Company Number: US-BAYER-200928582NA

PATIENT
  Sex: Female
  Weight: 72.727 kg

DRUGS (11)
  1. CLONAZEPAM [Concomitant]
     Indication: BIPOLAR DISORDER
     Dates: start: 20060101
  2. LAMICTAL [Concomitant]
     Dates: start: 20080401, end: 20090101
  3. YASMIN [Suspect]
     Route: 048
  4. TRAZODONE [Concomitant]
     Indication: BIPOLAR DISORDER
     Dates: start: 20060101
  5. WARFARIN [Concomitant]
     Dates: start: 20081001
  6. YAZ [Suspect]
     Indication: PREMENSTRUAL SYNDROME
  7. RISPERDAL [Concomitant]
     Dates: start: 20080401
  8. NAPROXEN [Concomitant]
     Dates: start: 20080901
  9. YAZ [Suspect]
     Indication: CONTRACEPTION
     Route: 048
     Dates: start: 20080601, end: 20081001
  10. LAMOTRIGINE [Concomitant]
     Dates: start: 20080701
  11. YAZ [Suspect]
     Indication: MENSTRUATION IRREGULAR

REACTIONS (6)
  - MUSCLE SPASMS [None]
  - DYSPNOEA [None]
  - PULMONARY EMBOLISM [None]
  - PAIN [None]
  - CHEST PAIN [None]
  - ATELECTASIS [None]
